FAERS Safety Report 6925037-X (Version None)
Quarter: 2010Q3

REPORT INFORMATION
  Report Type: 
  Country: None (occurrence: None)
  Receive Date: 20100816
  Receipt Date: 20100804
  Transmission Date: 20110219
  Serious: Yes (Hospitalization)
  Sender: FDA-Public Use
  Company Number: US-SANOFI-AVENTIS-2010SA046324

PATIENT
  Age: 55 Year
  Sex: Male
  Weight: 119.8 kg

DRUGS (7)
  1. ELOXATIN [Suspect]
     Indication: RECTAL CANCER
     Route: 042
     Dates: start: 20100614, end: 20100614
  2. ELOXATIN [Suspect]
     Route: 042
     Dates: start: 20100712, end: 20100712
  3. ERBITUX [Suspect]
     Indication: RECTAL CANCER
     Route: 042
     Dates: start: 20100614, end: 20100614
  4. ERBITUX [Suspect]
     Route: 042
     Dates: start: 20100712, end: 20100712
  5. XELODA [Suspect]
     Indication: RECTAL CANCER
     Route: 048
     Dates: start: 20100614, end: 20100712
  6. THERAPEUTIC RADIOPHARMACEUTICALS [Suspect]
     Indication: RECTAL CANCER
     Dates: end: 20100722
  7. ATORVASTATIN [Concomitant]

REACTIONS (1)
  - MYOCARDIAL INFARCTION [None]
